FAERS Safety Report 16896035 (Version 1)
Quarter: 2019Q4

REPORT INFORMATION
  Report Type: Spontaneous
  Country: US (occurrence: US)
  Receive Date: 20191008
  Receipt Date: 20191008
  Transmission Date: 20200122
  Serious: Yes (Death, Other)
  Sender: FDA-Public Use
  Company Number: US-ELI_LILLY_AND_COMPANY-US201910002875

PATIENT
  Sex: Male

DRUGS (3)
  1. VIAGRA [Suspect]
     Active Substance: SILDENAFIL CITRATE
     Dosage: 2-3 TIMES PER WEEK
     Route: 065
     Dates: start: 1998, end: 2012
  2. CIALIS [Suspect]
     Active Substance: TADALAFIL
     Indication: ERECTILE DYSFUNCTION
     Dosage: 2-3 TIMES PER WEEK
     Route: 065
     Dates: start: 2004, end: 2013
  3. VIAGRA [Suspect]
     Active Substance: SILDENAFIL CITRATE
     Indication: ERECTILE DYSFUNCTION
     Dosage: 2-3 TIMES PER WEEK
     Route: 065
     Dates: start: 1997, end: 1998

REACTIONS (2)
  - Depression [Unknown]
  - Malignant melanoma stage IV [Fatal]

NARRATIVE: CASE EVENT DATE: 1999
